FAERS Safety Report 8992495 (Version 10)
Quarter: 2014Q1

REPORT INFORMATION
  Report Type: Spontaneous
  Country: BE (occurrence: BE)
  Receive Date: 20121229
  Receipt Date: 20140120
  Transmission Date: 20141002
  Serious: Yes (Hospitalization, Other)
  Sender: FDA-Public Use
  Company Number: BE-AMGEN-BELSP2012083009

PATIENT
  Age: 65 Year
  Sex: Female

DRUGS (1)
  1. NPLATE [Suspect]
     Indication: IMMUNE THROMBOCYTOPENIC PURPURA
     Dosage: 0.26 ML, QWK, 250 MCG VIAL
     Route: 058
     Dates: start: 20120205

REACTIONS (9)
  - Cholecystitis acute [Unknown]
  - Cholelithiasis [Recovered/Resolved]
  - Sciatica [Recovered/Resolved]
  - Hypertension [Recovered/Resolved]
  - Epistaxis [Unknown]
  - Fatigue [Unknown]
  - Nasopharyngitis [Recovered/Resolved]
  - Skin disorder [Recovered/Resolved]
  - Headache [Recovered/Resolved]
